FAERS Safety Report 14039188 (Version 3)
Quarter: 2017Q4

REPORT INFORMATION
  Report Type: Spontaneous
  Country: US (occurrence: US)
  Receive Date: 20171004
  Receipt Date: 20171017
  Transmission Date: 20180321
  Serious: Yes (Other)
  Sender: FDA-Public Use
  Company Number: US-AMGEN-USASP2017147318

PATIENT
  Age: 71 Year
  Sex: Female

DRUGS (22)
  1. PANTOPRAZOLE [Concomitant]
     Active Substance: PANTOPRAZOLE
     Indication: PARKINSON^S DISEASE
     Dosage: UNK
     Dates: start: 201310
  2. ALPRAZOLAM. [Concomitant]
     Active Substance: ALPRAZOLAM
     Indication: PARKINSON^S DISEASE
     Dosage: 0.5 MG, BID
     Dates: start: 201310
  3. CLOZAPINE. [Concomitant]
     Active Substance: CLOZAPINE
     Indication: TREMOR
     Dosage: 12.5 MG, QHS
  4. CLOZAPINE. [Concomitant]
     Active Substance: CLOZAPINE
     Indication: PSYCHOTIC SYMPTOM
     Dosage: 25 MG, QHS
  5. TRAMADOL. [Concomitant]
     Active Substance: TRAMADOL
     Indication: PARKINSON^S DISEASE
     Dosage: UNK UNK, BID
     Dates: start: 201310
  6. MELATONIN [Concomitant]
     Active Substance: MELATONIN
     Indication: PARKINSON^S DISEASE
     Dosage: 3 MG, QHS
     Dates: start: 201605
  7. CLOZAPINE. [Concomitant]
     Active Substance: CLOZAPINE
     Indication: PARKINSON^S DISEASE
     Dosage: 62.5 MG (12.5 MG IN THE MORNING AND 50 MG EVERY BEDTIME)
     Dates: end: 2015
  8. ESCITALOPRAM [Concomitant]
     Active Substance: ESCITALOPRAM OXALATE
     Indication: PARKINSON^S DISEASE
     Dosage: 20 MG, QD
     Dates: start: 201310
  9. SERTRALINE [Concomitant]
     Active Substance: SERTRALINE HYDROCHLORIDE
     Indication: PARKINSON^S DISEASE
     Dosage: 50 MG, QD
     Dates: start: 201605
  10. CARBIDOPA AND LEVODOPA [Concomitant]
     Active Substance: CARBIDOPA\LEVODOPA
     Indication: PARKINSON^S DISEASE
     Dosage: UNK UNK, QID (CONTINUOUS RELEASE 50/200)
     Dates: start: 201310
  11. TRAZODONE [Concomitant]
     Active Substance: TRAZODONE HYDROCHLORIDE
     Indication: PARKINSON^S DISEASE
     Dosage: 100 MG, QHS
     Dates: start: 201310
  12. TRAZODONE [Concomitant]
     Active Substance: TRAZODONE HYDROCHLORIDE
     Dosage: 150 MG (100 MG IN MORNING AND 50 MG EVERY BEDTIME)
     Dates: start: 201605
  13. CLONAZEPAM. [Concomitant]
     Active Substance: CLONAZEPAM
     Indication: PARKINSON^S DISEASE
     Dosage: 0.5 MG, BID
     Dates: start: 201605
  14. CLOZAPINE. [Concomitant]
     Active Substance: CLOZAPINE
     Dosage: UNK
     Dates: start: 201510
  15. CARBIDOPA AND LEVODOPA [Concomitant]
     Active Substance: CARBIDOPA\LEVODOPA
     Dosage: UNK UNK, BID (CONTINUOUS RELEASE 50/200 BID AND 25/100 TID)
     Dates: start: 201605
  16. LIDOCAINE. [Concomitant]
     Active Substance: LIDOCAINE
     Indication: PARKINSON^S DISEASE
     Dosage: UNK (PATCH)
     Dates: start: 201310
  17. NEUPOGEN [Suspect]
     Active Substance: FILGRASTIM
     Indication: PRODUCT USED FOR UNKNOWN INDICATION
     Dosage: UNK
     Route: 065
     Dates: start: 2015
  18. NEUPOGEN [Suspect]
     Active Substance: FILGRASTIM
     Dosage: 300 MUG, AS NECESSARY
     Route: 065
     Dates: start: 201605
  19. CLOZAPINE. [Concomitant]
     Active Substance: CLOZAPINE
     Dosage: 12.5 MG, UNK
     Dates: start: 201605, end: 201606
  20. ENTACAPONE. [Concomitant]
     Active Substance: ENTACAPONE
     Indication: PARKINSON^S DISEASE
     Dosage: 200 MG, QID
     Dates: start: 201310
  21. ENTACAPONE. [Concomitant]
     Active Substance: ENTACAPONE
     Dosage: 200 MG, QD, BEFORE NOON
     Dates: start: 201605
  22. HYDROCODONE [Concomitant]
     Active Substance: HYDROCODONE
     Indication: PARKINSON^S DISEASE
     Dosage: UNK UNK, BID (5/325)
     Dates: start: 201605

REACTIONS (3)
  - Tremor [Unknown]
  - Psychotic symptom [Unknown]
  - Off label use [Unknown]

NARRATIVE: CASE EVENT DATE: 2015
